FAERS Safety Report 8484657-4 (Version None)
Quarter: 2012Q3

REPORT INFORMATION
  Report Type: 
  Country: None (occurrence: None)
  Receive Date: 20120703
  Receipt Date: 20120402
  Transmission Date: 20120928
  Serious: No
  Sender: FDA-Public Use
  Company Number: US-TEVA-331445USA

PATIENT
  Sex: Female

DRUGS (3)
  1. ANTIDEPRESSANTS [Concomitant]
  2. NUVIGIL [Suspect]
     Route: 048
     Dates: start: 20120301
  3. MOOD STABILIZER [Concomitant]

REACTIONS (4)
  - FEELING JITTERY [None]
  - GASTROINTESTINAL DISORDER [None]
  - NAUSEA [None]
  - DIARRHOEA [None]
